FAERS Safety Report 8446968-8 (Version None)
Quarter: 2012Q2

REPORT INFORMATION
  Report Type: 
  Country: None (occurrence: None)
  Receive Date: 20120613
  Receipt Date: 20120613
  Transmission Date: 20120825
  Serious: Yes (Death)
  Sender: FDA-Public Use
  Company Number: None

PATIENT
  Age: 57 Year
  Sex: Female
  Weight: 165.5629 kg

DRUGS (1)
  1. COLCRYS [Suspect]
     Indication: GOUT
     Dosage: 1 TABLET TWICE A DAY PO
     Route: 048
     Dates: start: 20070101, end: 20120308

REACTIONS (2)
  - NEPHROLITHIASIS [None]
  - RENAL FAILURE [None]
